FAERS Safety Report 4511099-6 (Version None)
Quarter: 2004Q4

REPORT INFORMATION
  Report Type: 
  Country: None (occurrence: None)
  Receive Date: 20041015
  Receipt Date: 20040602
  Transmission Date: 20050328
  Serious: Yes (Other)
  Sender: FDA-Public Use
  Company Number: 2004003871

PATIENT
  Age: 70 Year
  Sex: Female
  Weight: 86.1834 kg

DRUGS (8)
  1. NEURONTIN [Suspect]
     Indication: PAIN IN EXTREMITY
     Dosage: 900 MG (DAILY), ORAL
     Route: 048
     Dates: start: 20030101
  2. AMITRIPTYLINE (AMITRIPTYLINE) [Suspect]
     Indication: PAIN IN EXTREMITY
     Dates: start: 20030101, end: 20030101
  3. CARBAMAZEPINE [Suspect]
     Indication: PAIN IN EXTREMITY
     Dosage: ORAL
     Route: 048
     Dates: start: 20030101, end: 20030101
  4. ATORVASTATIN (ATORVASTATIN) [Concomitant]
  5. ROSIGLITAZONE MALEATE [Concomitant]
  6. GLIMEPIRIDE [Concomitant]
  7. LISINOPRIL [Concomitant]
  8. METFORMIN HCL [Concomitant]

REACTIONS (6)
  - ASTHENIA [None]
  - FALL [None]
  - HUMERUS FRACTURE [None]
  - INAPPROPRIATE AFFECT [None]
  - PAIN IN EXTREMITY [None]
  - POLYNEUROPATHY [None]
